FAERS Safety Report 15012079 (Version 2)
Quarter: 2018Q3

REPORT INFORMATION
  Report Type: Spontaneous
  Country: ES (occurrence: ES)
  Receive Date: 20180614
  Receipt Date: 20180813
  Transmission Date: 20181010
  Serious: Yes (Other)
  Sender: FDA-Public Use
  Company Number: PHHY2018ES020885

PATIENT
  Age: 27 Year
  Sex: Male

DRUGS (4)
  1. MYFORTIC [Suspect]
     Active Substance: MYCOPHENOLATE SODIUM
     Indication: HEART TRANSPLANT
     Dosage: UNK
     Route: 065
  2. ADVAGRAF [Suspect]
     Active Substance: TACROLIMUS
     Indication: HEART TRANSPLANT
     Dosage: (MODIFIED?RELEASE CAPSULE, HARD)UNK
     Route: 065
  3. DOBUTAMINE [Concomitant]
     Active Substance: DOBUTAMINE\DOBUTAMINE HYDROCHLORIDE
     Indication: THROMBOSIS IN DEVICE
     Dosage: UNK
     Route: 065
  4. DOBUTAMINE [Concomitant]
     Active Substance: DOBUTAMINE\DOBUTAMINE HYDROCHLORIDE
     Indication: HEART TRANSPLANT

REACTIONS (3)
  - Product use in unapproved indication [Unknown]
  - Tricuspid valve incompetence [Not Recovered/Not Resolved]
  - Off label use [Unknown]

NARRATIVE: CASE EVENT DATE: 20170701
